FAERS Safety Report 9399803 (Version 1)
Quarter: 2013Q3

REPORT INFORMATION
  Report Type: Report from Study
  Country: BR (occurrence: BR)
  Receive Date: 20130715
  Receipt Date: 20130715
  Transmission Date: 20140515
  Serious: Yes (Other)
  Sender: FDA-Public Use
  Company Number: PHHY2013BR074378

PATIENT
  Sex: Female
  Weight: 60 kg

DRUGS (4)
  1. TEGRETOL [Suspect]
     Indication: CONVULSION
     Dosage: 1 DF, TID
     Route: 048
  2. TEGRETOL [Suspect]
     Indication: CONVULSION
     Dosage: UNK UKN, TID
     Route: 048
  3. GARDENAL//PHENOBARBITAL [Concomitant]
     Indication: CONVULSION
     Dosage: 150 MG, (100 MG AT NIGHT PLUS 50 MG IN THE MORNING)
     Route: 048
  4. FRISIUM [Concomitant]
     Indication: AGITATION
     Dosage: 1 DF, TID
     Route: 048

REACTIONS (6)
  - Central nervous system lesion [Not Recovered/Not Resolved]
  - Gait disturbance [Not Recovered/Not Resolved]
  - Agitation [Recovered/Resolved]
  - Depressed mood [Recovered/Resolved]
  - Headache [Recovered/Resolved]
  - Binocular eye movement disorder [Recovered/Resolved]
